FAERS Safety Report 4525368-7 (Version None)
Quarter: 2004Q4

REPORT INFORMATION
  Report Type: 
  Country: None (occurrence: None)
  Receive Date: 20041112
  Receipt Date: 20040922
  Transmission Date: 20050328
  Serious: Yes (Other)
  Sender: FDA-Public Use
  Company Number: 2004232001US

PATIENT
  Age: 37 Year
  Sex: Male
  Weight: 77.1 kg

DRUGS (3)
  1. XANAX XR [Suspect]
     Indication: ANXIETY
     Dosage: 2 MG, BID, UNK
     Route: 065
     Dates: start: 20040601
  2. DOXEPIN (DOXEPIN) [Concomitant]
  3. RISPERDAL [Concomitant]

REACTIONS (4)
  - DEPRESSION [None]
  - PANIC ATTACK [None]
  - PSYCHIATRIC SYMPTOM [None]
  - SUICIDAL IDEATION [None]
